FAERS Safety Report 6075934-5 (Version None)
Quarter: 2009Q1

REPORT INFORMATION
  Report Type: 
  Country: None (occurrence: None)
  Receive Date: 20090212
  Receipt Date: 20090202
  Transmission Date: 20090719
  Serious: Yes (Other)
  Sender: FDA-Public Use
  Company Number: ES-PFIZER INC-2009164436

PATIENT

DRUGS (3)
  1. ZYVOXID [Suspect]
     Indication: SKIN INFECTION
     Dosage: 600 MG, 2X/DAY
     Route: 048
     Dates: start: 20080306, end: 20080307
  2. FORTAM [Suspect]
     Indication: SKIN INFECTION
     Dosage: 1 G, 3X/DAY
     Route: 042
     Dates: start: 20080303, end: 20080308
  3. SEROQUEL [Suspect]
     Indication: ADJUSTMENT DISORDER
     Dosage: 25 MG, 1X/DAY
     Route: 048
     Dates: start: 20080306, end: 20080307

REACTIONS (3)
  - DELIRIUM [None]
  - HYPERREFLEXIA [None]
  - MYOCLONUS [None]
